FAERS Safety Report 26162504 (Version 1)
Quarter: 2025Q4

REPORT INFORMATION
  Report Type: Spontaneous
  Country: US (occurrence: US)
  Receive Date: 20251216
  Receipt Date: 20251216
  Transmission Date: 20260117
  Serious: Yes (Other)
  Sender: ALEMBIC
  Company Number: US-ALEMBIC PHARMACUETICALS LIMITED-2025SCAL001735

PATIENT

DRUGS (2)
  1. TESTOSTERONE [Suspect]
     Active Substance: TESTOSTERONE
     Indication: Hypogonadism
     Dosage: UNK
     Route: 065
  2. VOSILASARM [Suspect]
     Active Substance: VOSILASARM
     Indication: Hypogonadism
     Dosage: UNK
     Route: 065

REACTIONS (6)
  - Renal infarct [Unknown]
  - Splenic infarction [Unknown]
  - Aortic thrombosis [Recovered/Resolved]
  - Abdominal pain [Unknown]
  - Vomiting [Unknown]
  - Drug interaction [Unknown]
